FAERS Safety Report 6034164-3 (Version None)
Quarter: 2009Q1

REPORT INFORMATION
  Report Type: 
  Country: None (occurrence: None)
  Receive Date: 20090108
  Receipt Date: 20081229
  Transmission Date: 20090719
  Serious: Yes (Other)
  Sender: FDA-Public Use
  Company Number: CHPA2008US23565

PATIENT
  Age: 46 Year
  Sex: Male
  Weight: 144.7 kg

DRUGS (1)
  1. THERAFLU DAYTIME SEVERE COLD WARMING SYRUP(PARACETAMOL, DEXTROMETHORPH [Suspect]
     Dosage: 225 ML, ONCE/SINGLE, ORAL
     Route: 048
     Dates: start: 20081229, end: 20081229

REACTIONS (3)
  - OVERDOSE [None]
  - SENSORY LOSS [None]
  - VISUAL IMPAIRMENT [None]
